FAERS Safety Report 7257779-3 (Version None)
Quarter: 2011Q1

REPORT INFORMATION
  Report Type: 
  Country: None (occurrence: None)
  Receive Date: 20110129
  Receipt Date: 20100525
  Transmission Date: 20110831
  Serious: No
  Sender: FDA-Public Use
  Company Number: US-ABBOTT-10P-163-0646988-00

PATIENT
  Sex: Female

DRUGS (2)
  1. HUMIRA [Suspect]
     Dates: start: 20100201, end: 20100504
  2. HUMIRA [Suspect]
     Indication: RHEUMATOID ARTHRITIS
     Route: 058
     Dates: start: 20070101, end: 20091001

REACTIONS (5)
  - HYPERSENSITIVITY [None]
  - NASAL CONGESTION [None]
  - LACRIMATION INCREASED [None]
  - COUGH [None]
  - DYSPNOEA [None]
